FAERS Safety Report 21775535 (Version 1)
Quarter: 2022Q4

REPORT INFORMATION
  Report Type: Spontaneous
  Country: CN (occurrence: CN)
  Receive Date: 20221226
  Receipt Date: 20221226
  Transmission Date: 20230112
  Serious: Yes (Hospitalization)
  Sender: FDA-Public Use
  Company Number: None

PATIENT
  Age: 53 Year
  Sex: Male
  Weight: 70 kg

DRUGS (4)
  1. MANNITOL [Suspect]
     Active Substance: MANNITOL
     Indication: Cerebral infarction
     Dosage: 125 ML, TWICE DAILY
     Route: 041
     Dates: start: 20220925, end: 20220927
  2. MANNITOL [Suspect]
     Active Substance: MANNITOL
     Dosage: 125 ML, THREE TIMES A DAY
     Route: 041
     Dates: start: 20220927, end: 20220930
  3. BUTYLPHTHALIDE [Suspect]
     Active Substance: BUTYLPHTHALIDE
     Indication: Cerebral infarction
     Dosage: 25 MG TWICE DAILY, MANUFACTURER: SHIYAO GROUP ENBIPU PHARMACEUT ICAL CO., LTD.
     Route: 041
     Dates: start: 20220925, end: 20220929
  4. ROSUVASTATIN CALCIUM [Suspect]
     Active Substance: ROSUVASTATIN CALCIUM
     Indication: Cerebral infarction
     Dosage: 20 MG, ONCE DAILY MANUFACTURER: LEK PHARMACEUTICALS D.D.
     Route: 048
     Dates: start: 20220925, end: 20220929

REACTIONS (7)
  - Rash [Recovered/Resolved]
  - Pyrexia [Recovered/Resolved]
  - Eosinophil count increased [Recovering/Resolving]
  - Dermatitis allergic [Recovering/Resolving]
  - Swelling [Unknown]
  - Erythema [Unknown]
  - Papule [Unknown]

NARRATIVE: CASE EVENT DATE: 20220927
